FAERS Safety Report 20467309 (Version 2)
Quarter: 2022Q1

REPORT INFORMATION
  Report Type: Spontaneous
  Country: AR (occurrence: AR)
  Receive Date: 20220214
  Receipt Date: 20220321
  Transmission Date: 20220423
  Serious: Yes (Other)
  Sender: FDA-Public Use
  Company Number: AR-PFIZER INC-202200204948

PATIENT
  Age: 69 Year
  Sex: Female

DRUGS (1)
  1. ENBREL [Suspect]
     Active Substance: ETANERCEPT
     Indication: Rheumatoid arthritis
     Dosage: 50 MG, ONCE EVERY 8 DAYS
     Route: 065
     Dates: start: 20180504

REACTIONS (2)
  - Knee arthroplasty [Not Recovered/Not Resolved]
  - Off label use [Unknown]
